FAERS Safety Report 7571135-X (Version None)
Quarter: 2011Q2

REPORT INFORMATION
  Report Type: 
  Country: None (occurrence: None)
  Receive Date: 20110624
  Receipt Date: 20110622
  Transmission Date: 20111010
  Serious: Yes (Death)
  Sender: FDA-Public Use
  Company Number: US-ACTELION-A-US2011-50381

PATIENT

DRUGS (3)
  1. WARFARIN SODIUM [Concomitant]
  2. TADALAFIL [Concomitant]
  3. TRACLEER [Suspect]
     Indication: PULMONARY ARTERIAL HYPERTENSION
     Dosage: UNK
     Route: 048
     Dates: start: 20100924, end: 20110612

REACTIONS (1)
  - B-CELL LYMPHOMA [None]
